FAERS Safety Report 6531706-6 (Version None)
Quarter: 2010Q1

REPORT INFORMATION
  Report Type: 
  Country: None (occurrence: None)
  Receive Date: 20100108
  Receipt Date: 20091228
  Transmission Date: 20100710
  Serious: Yes (Other)
  Sender: FDA-Public Use
  Company Number: JP-ELI_LILLY_AND_COMPANY-JP201001000786

PATIENT
  Age: 65 Year
  Sex: Male

DRUGS (5)
  1. ALIMTA [Suspect]
     Indication: NON-SMALL CELL LUNG CANCER
     Dosage: 500 MG/M2, OTHER
     Route: 042
  2. FOLIC ACID [Concomitant]
     Dosage: UNK, UNK
  3. VITAMIN B-12 [Concomitant]
  4. DEXAMETHASONE [Concomitant]
     Dosage: 8 MG, DAILY (1/D)
  5. H2-RECEPTOR ANTAGONISTS [Concomitant]

REACTIONS (1)
  - GASTROINTESTINAL PERFORATION [None]
